FAERS Safety Report 4960566-X (Version None)
Quarter: 2006Q1

REPORT INFORMATION
  Report Type: 
  Country: None (occurrence: None)
  Receive Date: 20060331
  Receipt Date: 20060331
  Transmission Date: 20060701
  Serious: Yes (Other)
  Sender: FDA-Public Use
  Company Number: None

PATIENT
  Sex: Male
  Weight: 129.2752 kg

DRUGS (1)
  1. OXYCONTIN [Suspect]
     Indication: SPINAL COLUMN STENOSIS
     Dosage: ONE PO Q 8 H
     Route: 048

REACTIONS (1)
  - DRUG EFFECT DECREASED [None]
